FAERS Safety Report 6313836-7 (Version None)
Quarter: 2009Q3

REPORT INFORMATION
  Report Type: 
  Country: None (occurrence: None)
  Receive Date: 20090818
  Receipt Date: 20090804
  Transmission Date: 20100115
  Serious: Yes (Other)
  Sender: FDA-Public Use
  Company Number: ES-MYLANLABS-2009S1013905

PATIENT
  Age: 37 Year
  Sex: Male

DRUGS (1)
  1. GEMFIBROZIL [Suspect]
     Indication: HYPERTRIGLYCERIDAEMIA
     Dates: start: 20050301, end: 20050801

REACTIONS (1)
  - RHABDOMYOLYSIS [None]
